FAERS Safety Report 6665590-7 (Version None)
Quarter: 2010Q1

REPORT INFORMATION
  Report Type: 
  Country: None (occurrence: None)
  Receive Date: 20100330
  Receipt Date: 20100310
  Transmission Date: 20100710
  Serious: Yes (Other)
  Sender: FDA-Public Use
  Company Number: 2010SP017868

PATIENT
  Age: 90 Year

DRUGS (1)
  1. MIRALAX [Suspect]
     Dosage: QD; PO
     Route: 048
     Dates: start: 20100308, end: 20100310

REACTIONS (4)
  - ABDOMINAL DISTENSION [None]
  - FAECES DISCOLOURED [None]
  - MUSCLE SPASMS [None]
  - UNEVALUABLE EVENT [None]
